FAERS Safety Report 7493186-6 (Version None)
Quarter: 2011Q2

REPORT INFORMATION
  Report Type: 
  Country: None (occurrence: None)
  Receive Date: 20110519
  Receipt Date: 20110519
  Transmission Date: 20111010
  Serious: Yes (Death)
  Sender: FDA-Public Use
  Company Number: None

PATIENT
  Age: 73 Year
  Sex: Female

DRUGS (3)
  1. RISPERDAL [Suspect]
     Indication: DEMENTIA
  2. SEROQUEL [Suspect]
     Indication: DEMENTIA
  3. ZYPREXA [Suspect]
     Indication: DEMENTIA

REACTIONS (3)
  - SOMNOLENCE [None]
  - COMA [None]
  - DRUG PRESCRIBING ERROR [None]
